FAERS Safety Report 4929118-1 (Version None)
Quarter: 2006Q1

REPORT INFORMATION
  Report Type: 
  Country: None (occurrence: None)
  Receive Date: 20060301
  Receipt Date: 20060212
  Transmission Date: 20060701
  Serious: Yes (Hospitalization)
  Sender: FDA-Public Use
  Company Number: DE-MERCK-0602DEU00076

PATIENT
  Age: 67 Year
  Sex: Female

DRUGS (1)
  1. VYTORIN [Suspect]
     Route: 048

REACTIONS (1)
  - CEREBROVASCULAR ACCIDENT [None]
